FAERS Safety Report 5848808-X (Version None)
Quarter: 2008Q3

REPORT INFORMATION
  Report Type: 
  Country: None (occurrence: None)
  Receive Date: 20080818
  Receipt Date: 20080806
  Transmission Date: 20090109
  Serious: Yes (Disabling)
  Sender: FDA-Public Use
  Company Number: GB-PFIZER INC-2008065747

PATIENT
  Age: 40 Year
  Sex: Female

DRUGS (1)
  1. CHANTIX [Suspect]
     Route: 048
     Dates: start: 20080714, end: 20080718

REACTIONS (5)
  - COORDINATION ABNORMAL [None]
  - DIZZINESS [None]
  - HEADACHE [None]
  - HYPOAESTHESIA [None]
  - HYPOAESTHESIA FACIAL [None]
